FAERS Safety Report 9508295 (Version 1)
Quarter: 2013Q1

REPORT INFORMATION
  Report Type: Spontaneous
  Country: US (occurrence: None)
  Receive Date: 20130305
  Receipt Date: 20130305
  Transmission Date: 20140127
  Serious: Yes (Other)
  Sender: FDA-Public Use
  Company Number: 163-21880-12021197

PATIENT
  Age: 46 Year
  Sex: Female
  Weight: 60.4 kg

DRUGS (8)
  1. REVLIMID (LENALIDOMIDE) [Suspect]
     Indication: PLASMA CELL MYELOMA
     Dates: start: 20120117
  2. DEXAMETHASONE [Concomitant]
  3. FENTANYL (FENTANYL) [Concomitant]
  4. OXYCODONE [Concomitant]
  5. PROTONIX [Concomitant]
  6. LEXAPRO (ESCITALOPRAM OXALATE) [Concomitant]
  7. MICROGESTIN (ANOVLAR) [Concomitant]
  8. ASPIRIN (ACETYLSALICYLIC ACID) [Concomitant]

REACTIONS (1)
  - Venous thrombosis limb [None]
